FAERS Safety Report 7736894-1 (Version None)
Quarter: 2011Q3

REPORT INFORMATION
  Report Type: 
  Country: None (occurrence: None)
  Receive Date: 20110908
  Receipt Date: 20110907
  Transmission Date: 20111222
  Serious: Yes (Other)
  Sender: FDA-Public Use
  Company Number: PHHY2010DE17478

PATIENT
  Sex: Male

DRUGS (6)
  1. CLOZAPINE [Suspect]
     Dosage: 100 MG, UNK
     Route: 048
  2. DIAZEPAM [Concomitant]
     Dosage: 1 TABLET TO NIGHT
     Route: 048
  3. INVEGA [Concomitant]
     Dosage: UNK UKN, PRN
  4. CLOZAPINE [Suspect]
     Dosage: 275 MG, UNK
     Route: 048
  5. CLOZAPINE [Suspect]
     Dosage: 225 MG, DAILY
     Route: 048
  6. CLOZAPINE [Suspect]
     Dosage: 150 MG, QD
     Route: 048

REACTIONS (6)
  - DEPRESSION [None]
  - HYPERHOMOCYSTEINAEMIA [None]
  - HAEMOGLOBIN DECREASED [None]
  - CARCINOEMBRYONIC ANTIGEN INCREASED [None]
  - COAGULOPATHY [None]
  - SEDATION [None]
